FAERS Safety Report 6369304-X (Version None)
Quarter: 2009Q3

REPORT INFORMATION
  Report Type: 
  Country: None (occurrence: None)
  Receive Date: 20090916
  Receipt Date: 20090831
  Transmission Date: 20100115
  Serious: Yes (Life-Threatening)
  Sender: FDA-Public Use
  Company Number: VAL_00312_2009

PATIENT
  Sex: Female

DRUGS (1)
  1. ROCALTROL [Suspect]
     Indication: OSTEOPOROSIS
     Dosage: 0.5 UG QD ORAL
     Route: 048
     Dates: end: 20090812

REACTIONS (1)
  - LONG QT SYNDROME [None]
